FAERS Safety Report 6073207-8 (Version None)
Quarter: 2009Q1

REPORT INFORMATION
  Report Type: 
  Country: None (occurrence: None)
  Receive Date: 20090205
  Receipt Date: 20090127
  Transmission Date: 20090719
  Serious: Yes (Other)
  Sender: FDA-Public Use
  Company Number: 2009JP000513

PATIENT
  Age: 61 Year
  Sex: Female
  Weight: 52.7 kg

DRUGS (5)
  1. PROGRAF [Suspect]
     Indication: RHEUMATOID ARTHRITIS
     Dosage: 1.5 MG, UID/QD, ORAL
     Route: 048
  2. EVISTA [Suspect]
     Dosage: 1 DF, UID/QD, ORAL
     Route: 048
  3. MUCOSTA (REBAMIPIDE) [Concomitant]
  4. METHYCOBAL (MECOBALAMIN) [Concomitant]
  5. SELTOUCH (FELBINAC) [Concomitant]

REACTIONS (1)
  - RETINAL VEIN OCCLUSION [None]
